FAERS Safety Report 9424738 (Version 1)
Quarter: 2013Q3

REPORT INFORMATION
  Report Type: Spontaneous
  Country: US (occurrence: US)
  Receive Date: 20130729
  Receipt Date: 20130729
  Transmission Date: 20140515
  Serious: Yes (Other)
  Sender: FDA-Public Use
  Company Number: US-ELI_LILLY_AND_COMPANY-US201307006876

PATIENT
  Sex: Female
  Weight: 81.18 kg

DRUGS (6)
  1. PROZAC [Suspect]
     Indication: DEPRESSION
     Dosage: 1 DF, UNKNOWN
     Dates: start: 1993
  2. EFFEXOR [Suspect]
     Dosage: 1 DF, UNKNOWN
     Dates: start: 1993
  3. ZOLOFT [Suspect]
     Indication: DEPRESSION
     Dosage: 1 DF, UNKNOWN
     Dates: start: 1993
  4. WELLBUTRIN [Suspect]
     Indication: DEPRESSION
     Dosage: 1 DF, UNKNOWN
     Dates: start: 1993
  5. VICODIN [Suspect]
     Indication: PAIN
     Dosage: 1 DF, UNKNOWN
  6. PHENTERMINE [Concomitant]
     Indication: DECREASED APPETITE
     Dosage: 37.5 MG, UNKNOWN

REACTIONS (6)
  - Weight increased [Unknown]
  - Diabetes mellitus [Unknown]
  - Hypertension [Unknown]
  - Blood cholesterol abnormal [Unknown]
  - Crying [Recovered/Resolved]
  - Abnormal dreams [Recovered/Resolved]
